FAERS Safety Report 6052531-9 (Version None)
Quarter: 2009Q1

REPORT INFORMATION
  Report Type: 
  Country: None (occurrence: None)
  Receive Date: 20090121
  Receipt Date: 20090107
  Transmission Date: 20090719
  Serious: Yes (Other)
  Sender: FDA-Public Use
  Company Number: 2009SP000504

PATIENT
  Age: 48 Year
  Sex: Male
  Weight: 65 kg

DRUGS (3)
  1. PEG-INTRON [Suspect]
     Indication: HEPATITIS C
  2. RIBAVIRIN [Suspect]
     Indication: HEPATITIS C
  3. TESTOSTERONE [Suspect]
     Indication: TRANSGENDER OPERATION
     Dosage: 800 MG;

REACTIONS (10)
  - AFFECT LABILITY [None]
  - ANAEMIA [None]
  - FATIGUE [None]
  - HYPERINSULINAEMIA [None]
  - HYPOKALAEMIA [None]
  - LETHARGY [None]
  - LISTLESS [None]
  - THYROIDITIS [None]
  - THYROTOXIC PERIODIC PARALYSIS [None]
  - WEIGHT DECREASED [None]
